FAERS Safety Report 13024506 (Version 2)
Quarter: 2017Q1

REPORT INFORMATION
  Report Type: Report from Study
  Country: US (occurrence: US)
  Receive Date: 20161213
  Receipt Date: 20170113
  Transmission Date: 20170428
  Serious: Yes (Death)
  Sender: FDA-Public Use
  Company Number: US-ACTELION-A-US2016-146646

PATIENT
  Age: 62 Year
  Sex: Female

DRUGS (2)
  1. OXYGEN. [Concomitant]
     Active Substance: OXYGEN
  2. TRACLEER [Suspect]
     Active Substance: BOSENTAN
     Indication: PULMONARY ARTERIAL HYPERTENSION
     Dosage: 125 MG, UNK
     Route: 048
     Dates: start: 20160725

REACTIONS (8)
  - Acute respiratory failure [Fatal]
  - Cardiac arrest [Fatal]
  - Chest pain [Fatal]
  - Pulmonary hypertension [Fatal]
  - Pulmonary fibrosis [Fatal]
  - Dyspnoea [Fatal]
  - Hepatic enzyme increased [Unknown]
  - Respiratory arrest [Fatal]

NARRATIVE: CASE EVENT DATE: 20161123
